FAERS Safety Report 10267577 (Version 1)
Quarter: 2014Q2

REPORT INFORMATION
  Report Type: Spontaneous
  Country: US (occurrence: US)
  Receive Date: 20140630
  Receipt Date: 20140630
  Transmission Date: 20141212
  Serious: No
  Sender: FDA-Public Use
  Company Number: US-PFIZER INC-2014178363

PATIENT
  Age: 68 Year
  Sex: Male
  Weight: 106.58 kg

DRUGS (6)
  1. CHANTIX [Suspect]
     Indication: SMOKING CESSATION THERAPY
     Dosage: 0.5 MG, UNK
     Dates: start: 201406, end: 201406
  2. CHANTIX [Suspect]
     Dosage: 1 MG, 2X/DAY
     Dates: start: 201406
  3. LISINOPRIL [Concomitant]
     Dosage: 40 MG, DAILY
  4. ASPIRIN [Concomitant]
     Dosage: 81 MG, DAILY
  5. HYDROCHLOROTHIAZIDE [Concomitant]
     Dosage: 25 MG, DAILY
  6. OMEPRAZOLE [Concomitant]
     Indication: DYSPEPSIA
     Dosage: 20 MG, DAILY

REACTIONS (2)
  - Nausea [Recovered/Resolved]
  - Insomnia [Not Recovered/Not Resolved]
